FAERS Safety Report 14410646 (Version 1)
Quarter: 2018Q1

REPORT INFORMATION
  Report Type: Report from Study
  Country: US (occurrence: US)
  Receive Date: 20180119
  Receipt Date: 20180119
  Transmission Date: 20180509
  Serious: Yes (Hospitalization)
  Sender: FDA-Public Use
  Company Number: US-COVIS PHARMA B.V.-2018COV00006

PATIENT
  Sex: Male

DRUGS (5)
  1. OMEPRAZOLE MAGNESIUM. [Suspect]
     Active Substance: OMEPRAZOLE MAGNESIUM
  2. DEXAMETHASONE. [Concomitant]
     Active Substance: DEXAMETHASONE
  3. TAGRISSO [Suspect]
     Active Substance: OSIMERTINIB
     Indication: LUNG NEOPLASM MALIGNANT
     Dosage: 80 MG, 1X/DAY
     Route: 048
  4. AMLODIPINE BESYLATE. [Concomitant]
     Active Substance: AMLODIPINE BESYLATE
  5. UNSPECIFIED STOOL SOFTENER [Concomitant]

REACTIONS (5)
  - Constipation [Unknown]
  - Headache [Unknown]
  - Vomiting [Unknown]
  - Drug dose omission [Unknown]
  - Dehydration [Unknown]
